FAERS Safety Report 7741377-9 (Version None)
Quarter: 2011Q3

REPORT INFORMATION
  Report Type: 
  Country: None (occurrence: None)
  Receive Date: 20110909
  Receipt Date: 20110831
  Transmission Date: 20111222
  Serious: Yes (Hospitalization)
  Sender: FDA-Public Use
  Company Number: PHHY2011JP11000

PATIENT
  Age: 28 Year
  Sex: Male

DRUGS (5)
  1. SIMULECT [Suspect]
     Indication: RENAL TRANSPLANT
     Dosage: 20 MG, ONCE/SINGLE
     Route: 042
     Dates: start: 20100226
  2. PREDNISOLONE [Suspect]
     Indication: RENAL TRANSPLANT
  3. SIMULECT [Suspect]
     Dosage: 20 MG, UNK
     Route: 042
     Dates: start: 20100301
  4. TACROLIMUS [Suspect]
     Indication: RENAL TRANSPLANT
  5. MYCOPHENOLATE MOFETIL [Suspect]
     Indication: RENAL TRANSPLANT

REACTIONS (2)
  - PELVIC HAEMATOMA [None]
  - ADENOVIRAL HAEMORRHAGIC CYSTITIS [None]
